FAERS Safety Report 8606780-3 (Version None)
Quarter: 2012Q3

REPORT INFORMATION
  Report Type: 
  Country: None (occurrence: None)
  Receive Date: 20120820
  Receipt Date: 20120807
  Transmission Date: 20120928
  Serious: Yes (Life-Threatening, Hospitalization)
  Sender: FDA-Public Use
  Company Number: DE-ELI_LILLY_AND_COMPANY-DE201208002123

PATIENT

DRUGS (4)
  1. LEVOTHYROXINE SODIUM [Concomitant]
     Dosage: UNK, QD
  2. DIABESIN [Concomitant]
  3. IRBESARTAN [Concomitant]
     Dosage: UNK, QD
  4. BYDUREON [Suspect]
     Indication: DIABETES MELLITUS
     Dosage: UNK UNK, UNKNOWN
     Route: 058
     Dates: start: 20120728

REACTIONS (6)
  - DYSPHAGIA [None]
  - RASH [None]
  - ABDOMINAL DISTENSION [None]
  - RESPIRATORY DISTRESS [None]
  - SWELLING FACE [None]
  - ABDOMINAL PAIN UPPER [None]
